FAERS Safety Report 5103214-0 (Version None)
Quarter: 2006Q3

REPORT INFORMATION
  Report Type: 
  Country: None (occurrence: None)
  Receive Date: 20060912
  Receipt Date: 20060912
  Transmission Date: 20061208
  Serious: No
  Sender: FDA-Public Use
  Company Number: None

PATIENT
  Age: 34 Year
  Sex: Female

DRUGS (1)
  1. ZOLPIDEM TARTRATE [Suspect]

REACTIONS (6)
  - DIZZINESS [None]
  - HEART RATE ABNORMAL [None]
  - NAUSEA [None]
  - SYNCOPE [None]
  - VERTIGO [None]
  - VOMITING [None]
